FAERS Safety Report 5724066-1 (Version None)
Quarter: 2008Q2

REPORT INFORMATION
  Report Type: 
  Country: None (occurrence: None)
  Receive Date: 20080430
  Receipt Date: 20080428
  Transmission Date: 20081010
  Serious: Yes (Hospitalization)
  Sender: FDA-Public Use
  Company Number: DE-BOEHRINGER INGELHEIM GMBH, GERMANY-2008-DE-02444DE

PATIENT
  Sex: Male
  Weight: 79 kg

DRUGS (2)
  1. MICARDIS [Suspect]
     Indication: HYPERTENSION
     Dates: start: 20070801, end: 20071201
  2. MICARDIS HCT [Suspect]
     Indication: HYPERTENSION
     Dosage: 80 MG TELMISARTAN/12,5 MG HYDROCHLOROTHIAZID
     Dates: start: 20080101, end: 20080401

REACTIONS (3)
  - ARTHRITIS [None]
  - ARTHROPATHY [None]
  - MUSCULOSKELETAL STIFFNESS [None]
